FAERS Safety Report 6593259-6 (Version None)
Quarter: 2010Q1

REPORT INFORMATION
  Report Type: 
  Country: None (occurrence: None)
  Receive Date: 20100212
  Receipt Date: 20100203
  Transmission Date: 20100710
  Serious: Yes (Life-Threatening)
  Sender: FDA-Public Use
  Company Number: 2010JP000215

PATIENT
  Age: 41 Year
  Sex: Male
  Weight: 54.1 kg

DRUGS (9)
  1. PROGRAF [Suspect]
     Indication: BONE MARROW TRANSPLANT
     Dosage: 5 MG, BID, ORAL; ORAL
     Route: 048
     Dates: start: 20091027, end: 20100107
  2. PROGRAF [Suspect]
     Indication: BONE MARROW TRANSPLANT
     Dosage: 5 MG, BID, ORAL; ORAL
     Route: 048
     Dates: start: 20100108, end: 20100116
  3. CELLCEPT [Concomitant]
  4. URSO (URSODEOXYCHOLIC ACID) TABLET [Concomitant]
  5. PREDNISOLONE [Concomitant]
  6. SELBEX (TEPRENONE) CAPSULE [Concomitant]
  7. BAKTAR (SULFAMETHOXAZOLE, TRIMETHOPRIM)  TABLET [Concomitant]
  8. AMBISOME (CHOLESTEROL) INJECTION [Concomitant]
  9. PROGRAF [Concomitant]

REACTIONS (3)
  - BLOOD PRESSURE INCREASED [None]
  - REVERSIBLE POSTERIOR LEUKOENCEPHALOPATHY SYNDROME [None]
  - THROMBOTIC MICROANGIOPATHY [None]
